FAERS Safety Report 4785906-6 (Version None)
Quarter: 2005Q3

REPORT INFORMATION
  Report Type: 
  Country: None (occurrence: None)
  Receive Date: 20050930
  Receipt Date: 20050921
  Transmission Date: 20060218
  Serious: Yes (Congenital Anomaly)
  Sender: FDA-Public Use
  Company Number: 2005JP001813

PATIENT
  Age: 1 Month
  Sex: 0

DRUGS (1)
  1. PROGRAF [Suspect]
     Dosage: TRANSPLACENTAL
     Route: 064

REACTIONS (4)
  - DRUG EXPOSURE DURING PREGNANCY [None]
  - ENCEPHALOPATHY NEONATAL [None]
  - REVERSIBLE POSTERIOR LEUKOENCEPHALOPATHY SYNDROME [None]
  - VICTIM OF CHILD ABUSE [None]
